FAERS Safety Report 5391761-6 (Version None)
Quarter: 2007Q3

REPORT INFORMATION
  Report Type: 
  Country: None (occurrence: None)
  Receive Date: 20070717
  Receipt Date: 20070711
  Transmission Date: 20080115
  Serious: Yes (Hospitalization)
  Sender: FDA-Public Use
  Company Number: GXKR2007DE05832

PATIENT
  Age: 33 Year
  Sex: Female

DRUGS (3)
  1. PAROXETINE [Suspect]
     Dosage: ORAL
     Route: 048
  2. EDRONAX (REBOXETINE) [Concomitant]
  3. RISPERDAL [Concomitant]

REACTIONS (6)
  - COGWHEEL RIGIDITY [None]
  - DRUG INTERACTION [None]
  - DRUG LEVEL INCREASED [None]
  - ENZYME INHIBITION [None]
  - EXTRAPYRAMIDAL DISORDER [None]
  - TREMOR [None]
